FAERS Safety Report 18059299 (Version 4)
Quarter: 2021Q1

REPORT INFORMATION
  Report Type: Spontaneous
  Country: GB (occurrence: GB)
  Receive Date: 20200723
  Receipt Date: 20210226
  Transmission Date: 20210419
  Serious: Yes (Hospitalization, Other)
  Sender: FDA-Public Use
  Company Number: GB-ASTRAZENECA-2020SE91513

PATIENT
  Age: 60 Year
  Sex: Female

DRUGS (3)
  1. IBRANCE [Suspect]
     Active Substance: PALBOCICLIB
     Indication: NEOPLASM MALIGNANT
     Dosage: 75 MG, CYCLIC (75 MG) CYCLE 14
     Route: 048
  2. IBRANCE [Suspect]
     Active Substance: PALBOCICLIB
     Indication: NEOPLASM MALIGNANT
     Route: 048
     Dates: start: 201902
  3. FULVESTRANT. [Suspect]
     Active Substance: FULVESTRANT
     Dosage: 500 MG, CYCLIC (ON DAYS 1, 15, 29 AND ONCE A MONTH THEREAFTER)
     Route: 030
     Dates: start: 201902

REACTIONS (7)
  - Pyrexia [Recovered/Resolved]
  - Cough [Unknown]
  - Neoplasm progression [Unknown]
  - Dyspnoea [Unknown]
  - Fatigue [Unknown]
  - COVID-19 [Recovered/Resolved]
  - Neutropenia [Unknown]

NARRATIVE: CASE EVENT DATE: 20200320
